FAERS Safety Report 4497585-6 (Version None)
Quarter: 2004Q4

REPORT INFORMATION
  Report Type: 
  Country: None (occurrence: None)
  Receive Date: 20041108
  Receipt Date: 20041025
  Transmission Date: 20050328
  Serious: Yes (Other)
  Sender: FDA-Public Use
  Company Number: GB-JNJFOC-20041007637

PATIENT
  Sex: Male

DRUGS (5)
  1. RISPERDAL [Suspect]
     Indication: SCHIZOPHRENIA
     Dosage: 1.5 MG BD - 100 MG DAILY, PER SOURCE DOCUMENTS
     Route: 049
  2. CLOZAPINE [Suspect]
     Indication: SCHIZOPHRENIA
     Route: 049
  3. RANITIDINE [Suspect]
  4. GABAPENTIN [Suspect]
     Route: 049
  5. LAMOTRIGINE [Suspect]
     Route: 049

REACTIONS (3)
  - HAEMOGLOBIN DECREASED [None]
  - NEUTROPENIA [None]
  - WHITE BLOOD CELL COUNT DECREASED [None]
